FAERS Safety Report 7378871-9 (Version None)
Quarter: 2011Q1

REPORT INFORMATION
  Report Type: 
  Country: None (occurrence: None)
  Receive Date: 20110328
  Receipt Date: 20110322
  Transmission Date: 20110831
  Serious: Yes (Death, Other)
  Sender: FDA-Public Use
  Company Number: PHHY2011FI18796

PATIENT
  Sex: Female

DRUGS (11)
  1. OXYCONTIN [Concomitant]
     Indication: CANCER PAIN
     Dosage: 320 MG, BID
  2. LACTULOSE [Concomitant]
     Dosage: 667 MG/ML, UNK
     Route: 048
  3. LACTULOSE [Concomitant]
     Indication: CONSTIPATION
     Dosage: 20 ML, BID
  4. ZOLPIDEM TARTRATE [Concomitant]
     Indication: INSOMNIA
     Dosage: 10 MG, QD
  5. ZOMETA [Suspect]
     Indication: OSTEOPOROSIS
     Dosage: 4 MG, UNK
     Route: 042
     Dates: start: 20100527, end: 20110215
  6. NICORETTE [Concomitant]
     Indication: NICOTINE DEPENDENCE
     Dosage: 10 MG PER 16 H
     Route: 062
  7. CITALOPRAM HYDROBROMIDE [Concomitant]
     Indication: DEPRESSION
     Dosage: 30 MG, QD
  8. ZOMETA [Suspect]
     Dosage: 4 MG, QMO
  9. MUCOMYST [Concomitant]
     Indication: MUCOSAL INFLAMMATION
     Dosage: 600 MG, BID
  10. MIRTAZAPINE [Concomitant]
     Indication: DEPRESSION
     Dosage: 15 MG, QD
  11. LYRICA [Concomitant]
     Indication: CANCER PAIN
     Dosage: 150 MG, BID

REACTIONS (5)
  - OSTEONECROSIS OF JAW [None]
  - POSTOPERATIVE WOUND COMPLICATION [None]
  - NEOPLASM MALIGNANT [None]
  - MOUTH ULCERATION [None]
  - ABSCESS ORAL [None]
